FAERS Safety Report 22076871 (Version 4)
Quarter: 2023Q2

REPORT INFORMATION
  Report Type: Report from Study
  Country: CA (occurrence: CA)
  Receive Date: 20230309
  Receipt Date: 20230614
  Transmission Date: 20230722
  Serious: Yes (Hospitalization, Other)
  Sender: FDA-Public Use
  Company Number: CA-JNJFOC-20230303448

PATIENT
  Age: 79 Year
  Sex: Male
  Weight: 91 kg

DRUGS (1)
  1. REMICADE [Suspect]
     Active Substance: INFLIXIMAB
     Indication: Ankylosing spondylitis
     Dosage: ON 01-MAR-2023, PATIENT RECEIVED HIS 115 TH INFLIXIMAB INFUSION OF 500 MG^
     Route: 042
     Dates: start: 20080507, end: 20230301

REACTIONS (4)
  - Sepsis [Recovering/Resolving]
  - Kidney infection [Recovering/Resolving]
  - Cystitis [Recovering/Resolving]
  - Nephrolithiasis [Unknown]

NARRATIVE: CASE EVENT DATE: 20230202
